FAERS Safety Report 7176038-0 (Version None)
Quarter: 2010Q4

REPORT INFORMATION
  Report Type: 
  Country: None (occurrence: None)
  Receive Date: 20101207
  Receipt Date: 20101126
  Transmission Date: 20110411
  Serious: Yes (Other)
  Sender: FDA-Public Use
  Company Number: 1000017519

PATIENT
  Age: 90 Year
  Sex: Female

DRUGS (7)
  1. NEBIVOLOL HCL [Suspect]
     Dosage: 5 MG (5 MG, 1 IN 1 D), ORAL
     Route: 048
  2. LEVOTHYROX (LEVOTHYROXINE SODIUM) [Concomitant]
  3. MONICOR LP (ISOSORBIDE MONONITRATE) [Concomitant]
  4. IMOVANE (ZOPICLONE) [Concomitant]
  5. CACIT VITAMINE D3 (CALCIUM CARBONATE, COLECALCIFEROL) [Concomitant]
  6. NOVOMIX (INSULIN ASPART) [Concomitant]
  7. MEDIATENSYL (URAPIDIL) [Concomitant]

REACTIONS (8)
  - ANTINUCLEAR ANTIBODY POSITIVE [None]
  - APHTHOUS STOMATITIS [None]
  - BLISTER [None]
  - PEMPHIGOID [None]
  - PRURITUS GENERALISED [None]
  - RASH [None]
  - SECRETION DISCHARGE [None]
  - SKIN DISCOLOURATION [None]
